FAERS Safety Report 9430760 (Version 1)
Quarter: 2013Q3

REPORT INFORMATION
  Report Type: Spontaneous
  Country: US (occurrence: US)
  Receive Date: 20130730
  Receipt Date: 20130730
  Transmission Date: 20140515
  Serious: No
  Sender: FDA-Public Use
  Company Number: US-ABBOTT-13P-163-1104028-00

PATIENT
  Age: 65 Year
  Sex: Female
  Weight: 68.1 kg

DRUGS (5)
  1. NIASPAN (COATED) [Suspect]
     Indication: BLOOD CHOLESTEROL INCREASED
     Dates: start: 201303
  2. SERTRALINE [Concomitant]
     Indication: PRODUCT USED FOR UNKNOWN INDICATION
  3. SYNTHROID [Concomitant]
     Indication: HYPOTHYROIDISM
  4. TAMOXIFEN [Concomitant]
     Indication: PRODUCT USED FOR UNKNOWN INDICATION
  5. DILTIAZEM [Concomitant]
     Indication: HYPERTENSION

REACTIONS (2)
  - Hypotension [Not Recovered/Not Resolved]
  - Asthenia [Not Recovered/Not Resolved]
